FAERS Safety Report 19891163 (Version 2)
Quarter: 2021Q4

REPORT INFORMATION
  Report Type: Spontaneous
  Country: US (occurrence: US)
  Receive Date: 20210928
  Receipt Date: 20211026
  Transmission Date: 20220303
  Serious: Yes (Hospitalization, Other)
  Sender: FDA-Public Use
  Company Number: US-PFIZER INC-202101259152

PATIENT
  Age: 71 Year
  Sex: Female
  Weight: 56.24 kg

DRUGS (25)
  1. LYRICA [Suspect]
     Active Substance: PREGABALIN
     Dosage: 150 MG, 2X/DAY
     Route: 048
  2. OMEPRAZOLE [Concomitant]
     Active Substance: OMEPRAZOLE
     Dosage: 40 MG, 1X/DAY
     Route: 048
  3. COMPAZINE [Concomitant]
     Active Substance: PROCHLORPERAZINE MALEATE
     Dosage: 10 MG, AS NEEDED (1 TABLET ORALLY Q(EVERY)8H PRN (AS NEEDED))
     Route: 048
  4. METOPROLOL SUCCINATE [Concomitant]
     Active Substance: METOPROLOL SUCCINATE
     Dosage: 25 MG, 1X/DAY
     Route: 048
  5. TYLENOL [Concomitant]
     Active Substance: ACETAMINOPHEN
     Dosage: UNK
  6. MOBIC [Concomitant]
     Active Substance: MELOXICAM
     Dosage: 15 MG, 1X/DAY
     Route: 048
  7. PLAQUENIL [Concomitant]
     Active Substance: HYDROXYCHLOROQUINE SULFATE
     Dosage: 200 MG, 1X/DAY (1 TABLET WITH FOOD OR MILK ORALLY ONCE A DAY )
     Route: 048
  8. PREDNISONE [Concomitant]
     Active Substance: PREDNISONE
     Dosage: 2 DF, DAILY
     Route: 048
  9. CALCIUM\CHOLECALCIFEROL [Concomitant]
     Active Substance: CALCIUM\CHOLECALCIFEROL
     Dosage: 1X/DAY (600-125 MG TABLET 1 TABLET WITH MEALS ORALLY ONCE DAILY)
     Route: 048
  10. HYDROCORTISONE [Concomitant]
     Active Substance: HYDROCORTISONE
     Dosage: UNK, 2X/DAY (1 APPLICATION TO AFFECTED AREA EXTERNALLY TWICE A DAY)
  11. PREMARIN [Concomitant]
     Active Substance: ESTROGENS, CONJUGATED
     Dosage: UNK UNK, AS NEEDED
     Route: 067
  12. FOLIC ACID [Concomitant]
     Active Substance: FOLIC ACID
     Dosage: 1 MG, 1X/DAY
     Route: 048
  13. CLARITIN-D NOS [Concomitant]
     Active Substance: LORATADINE\PSEUDOEPHEDRINE SULFATE
     Dosage: AS NEEDED, (5-120 MG TABLET EXTENDED RELEASE 12 HOUR TABLET AS NEEDED ORALLY EVERY 12 HRS)
     Route: 048
  14. VENTOLIN HFA [Concomitant]
     Active Substance: ALBUTEROL SULFATE
     Dosage: AS NEEDED, (108 (90 BASE) MCG/ACT AEROSOL SOLUTION 2 PUFFS AS NEEDED INHALATION EVERY 4 HRS)
  15. MONTELUKAST SODIUM [Concomitant]
     Active Substance: MONTELUKAST SODIUM
     Dosage: 10 MG, 1X/DAY
     Route: 048
  16. METHOTREXATE SODIUM [Concomitant]
     Active Substance: METHOTREXATE SODIUM
     Dosage: 10 MG, WEEKLY (4 TABLETS ORALLY WEEKLY)
     Route: 048
  17. METHADONE HYDROCHLORIDE [Concomitant]
     Active Substance: METHADONE HYDROCHLORIDE
     Indication: Psoriatic arthropathy
     Dosage: 5 MG, 3X/DAY
     Route: 048
  18. METHADONE HYDROCHLORIDE [Concomitant]
     Active Substance: METHADONE HYDROCHLORIDE
     Indication: Pelvic pain
  19. METHADONE HYDROCHLORIDE [Concomitant]
     Active Substance: METHADONE HYDROCHLORIDE
     Indication: Pain in extremity
  20. FOSAMAX [Concomitant]
     Active Substance: ALENDRONATE SODIUM
     Dosage: 70 MG (ONCE A WEEK)
     Route: 048
  21. FLUTICASONE [Concomitant]
     Active Substance: FLUTICASONE
     Dosage: UNK, 1X/DAY (1 SPRAY IN EACH NOSTRIL NASALLY ONCE A DAY )
     Route: 045
  22. BACTRIM DS [Concomitant]
     Active Substance: SULFAMETHOXAZOLE\TRIMETHOPRIM
     Dosage: 1 DF, 2X/DAY
     Route: 048
  23. ZITHROMAX [Concomitant]
     Active Substance: AZITHROMYCIN DIHYDRATE
     Dosage: 250 MG (2 TABLET ON THE FIRST DAY, THEN 1 TABLET DAILY FOR 4 DAYS ORALLY ONCE A DAY)
     Route: 048
  24. PAROXETINE [Concomitant]
     Active Substance: PAROXETINE
     Dosage: 10 MG, 1X/DAY (1 TABLET IN THE MORNING ORALLY ONCE A DAY)
     Route: 048
  25. PREPARATION H [HYDROCORTISONE] [Concomitant]
     Dosage: UNK UNK, AS NEEDED (1 APPLICATION TO AFFECTED AREA EXTERNALLY TWICE A DAY AS NEEDED)

REACTIONS (16)
  - Thoracic vertebral fracture [Unknown]
  - Back pain [Unknown]
  - Cystitis [Unknown]
  - Urinary tract infection [Unknown]
  - Fracture [Unknown]
  - Rheumatoid arthritis [Unknown]
  - Muscular weakness [Unknown]
  - Essential hypertension [Unknown]
  - Hypoaesthesia [Unknown]
  - Pain [Not Recovered/Not Resolved]
  - Asthenia [Not Recovered/Not Resolved]
  - Loss of personal independence in daily activities [Unknown]
  - Neck pain [Unknown]
  - Dysstasia [Unknown]
  - Swelling [Unknown]
  - Oedema peripheral [Unknown]

NARRATIVE: CASE EVENT DATE: 20190101
